FAERS Safety Report 4374348-3 (Version None)
Quarter: 2004Q2

REPORT INFORMATION
  Report Type: 
  Country: None (occurrence: None)
  Receive Date: 20040608
  Receipt Date: 20040608
  Transmission Date: 20050107
  Serious: Yes (Disabling)
  Sender: FDA-Public Use
  Company Number: None

PATIENT
  Age: 70 Year
  Sex: Male
  Weight: 77.1115 kg

DRUGS (4)
  1. LIPITOR [Suspect]
     Indication: HYPERCHOLESTEROLAEMIA
     Dosage: DAILY ORAL
     Route: 048
     Dates: start: 20030601, end: 20040101
  2. LIPITOR [Suspect]
     Indication: HYPERLIPIDAEMIA
     Dosage: DAILY ORAL
     Route: 048
     Dates: start: 20030601, end: 20040101
  3. CRESTOR [Suspect]
     Indication: HYPERCHOLESTEROLAEMIA
     Dosage: DAILY ORAL
     Route: 048
     Dates: start: 20040101, end: 20040520
  4. CRESTOR [Suspect]
     Indication: HYPERLIPIDAEMIA
     Dosage: DAILY ORAL
     Route: 048
     Dates: start: 20040101, end: 20040520

REACTIONS (2)
  - ASTHENIA [None]
  - PAIN [None]
